FAERS Safety Report 25372022 (Version 1)
Quarter: 2025Q2

REPORT INFORMATION
  Report Type: Spontaneous
  Country: GB (occurrence: GB)
  Receive Date: 20250529
  Receipt Date: 20250529
  Transmission Date: 20250717
  Serious: Yes (Other)
  Sender: RANBAXY
  Company Number: GB-SUN PHARMACEUTICAL INDUSTRIES LTD-2025RR-509212

PATIENT
  Age: 69 Year
  Sex: Female

DRUGS (2)
  1. PACLITAXEL [Suspect]
     Active Substance: PACLITAXEL
     Indication: Breast cancer metastatic
     Dosage: 80 MILLIGRAM/SQ. METER, WEEKLY
     Route: 065
  2. KETOROLAC [Suspect]
     Active Substance: KETOROLAC TROMETHAMINE
     Indication: Cystoid macular oedema
     Route: 047

REACTIONS (2)
  - Cystoid macular oedema [Recovering/Resolving]
  - Drug ineffective [Unknown]
